FAERS Safety Report 10423674 (Version 1)
Quarter: 2014Q3

REPORT INFORMATION
  Report Type: Spontaneous
  Country: RS (occurrence: RS)
  Receive Date: 20140902
  Receipt Date: 20140902
  Transmission Date: 20150326
  Serious: Yes (Death, Hospitalization)
  Sender: FDA-Public Use
  Company Number: PHHY2014RS106816

PATIENT
  Age: 67 Year
  Sex: Female
  Weight: 65 kg

DRUGS (6)
  1. BISOPROLOL [Concomitant]
     Active Substance: BISOPROLOL
     Dosage: 2.5 MG, QD
  2. ASPIRIN. [Concomitant]
     Active Substance: ASPIRIN
     Dosage: 100 MG, QD
  3. ATORVASTATIN [Suspect]
     Active Substance: ATORVASTATIN
     Indication: HYPERCHOLESTEROLAEMIA
     Dosage: 20 MG, QD
  4. RAMIPRIL. [Concomitant]
     Active Substance: RAMIPRIL
     Dosage: 5 MG, BID
  5. BOTOX [Concomitant]
     Active Substance: ONABOTULINUMTOXINA
     Indication: BLEPHAROSPASM
  6. PENTAERITHRITYL TETRANITRATE [Concomitant]
     Active Substance: PENTAERYTHRITOL TETRANITRATE
     Dosage: 40 MG, BID

REACTIONS (21)
  - Blood cholesterol increased [None]
  - Blood triglycerides increased [None]
  - Mobility decreased [Not Recovered/Not Resolved]
  - Blood lactate dehydrogenase increased [Recovering/Resolving]
  - Muscular weakness [Not Recovered/Not Resolved]
  - Gastrointestinal hypomotility [Recovered/Resolved]
  - Constipation [Unknown]
  - Immobile [Not Recovered/Not Resolved]
  - Alanine aminotransferase increased [Recovering/Resolving]
  - Posture abnormal [Unknown]
  - Blood creatine phosphokinase increased [Recovering/Resolving]
  - Urinary retention [Recovered/Resolved]
  - Abdominal distension [Unknown]
  - Aspartate aminotransferase increased [Recovering/Resolving]
  - Blood 1,25-dihydroxycholecalciferol decreased [None]
  - Polymyositis [Not Recovered/Not Resolved]
  - Hypokinesia [Unknown]
  - General physical health deterioration [Not Recovered/Not Resolved]
  - Blood uric acid increased [Recovering/Resolving]
  - Myopathy [Not Recovered/Not Resolved]
  - Myocardial infarction [Fatal]
